FAERS Safety Report 5519560-2 (Version None)
Quarter: 2007Q4

REPORT INFORMATION
  Report Type: 
  Country: None (occurrence: None)
  Receive Date: 20071116
  Receipt Date: 20071109
  Transmission Date: 20080405
  Serious: Yes (Other)
  Sender: FDA-Public Use
  Company Number: B0495703A

PATIENT
  Age: 28 Year
  Sex: Female

DRUGS (1)
  1. ZINNAT [Suspect]
     Indication: URINARY TRACT INFECTION
     Route: 048
     Dates: start: 20060713, end: 20060720

REACTIONS (2)
  - ABORTION SPONTANEOUS [None]
  - DRUG EXPOSURE DURING PREGNANCY [None]
